FAERS Safety Report 6649973-7 (Version None)
Quarter: 2010Q1

REPORT INFORMATION
  Report Type: 
  Country: None (occurrence: None)
  Receive Date: 20100324
  Receipt Date: 20100324
  Transmission Date: 20100710
  Serious: Yes (Life-Threatening)
  Sender: FDA-Public Use
  Company Number: None

PATIENT
  Age: 56 Year
  Sex: Female
  Weight: 86.1834 kg

DRUGS (1)
  1. JANUVIA [Suspect]
     Indication: DIABETES MELLITUS
     Dosage: ONE PILL DAILY AT BREAKFAST
     Dates: start: 20100101, end: 20100201

REACTIONS (3)
  - HYPOVENTILATION [None]
  - PHARYNGEAL OEDEMA [None]
  - SWOLLEN TONGUE [None]
